FAERS Safety Report 16536655 (Version 1)
Quarter: 2019Q3

REPORT INFORMATION
  Report Type: Spontaneous
  Country: SE (occurrence: SE)
  Receive Date: 20190706
  Receipt Date: 20190706
  Transmission Date: 20191004
  Serious: Yes (Other)
  Sender: FDA-Public Use
  Company Number: SE-ACCORD-137303

PATIENT
  Age: 29 Year
  Sex: Female

DRUGS (10)
  1. DIVISUN [Concomitant]
  2. ZYPADHERA [Concomitant]
     Active Substance: OLANZAPINE PAMOATE
  3. TAVEGYL [Concomitant]
     Active Substance: CLEMASTINE FUMARATE
  4. TRULICITY [Concomitant]
     Active Substance: DULAGLUTIDE
  5. JARDIANCE [Concomitant]
     Active Substance: EMPAGLIFLOZIN
  6. OMEPRAZOLE. [Concomitant]
     Active Substance: OMEPRAZOLE
  7. TRILAFON [Concomitant]
     Active Substance: PERPHENAZINE
  8. LANTUS [Concomitant]
     Active Substance: INSULIN GLARGINE
  9. METOPROLOL. [Concomitant]
     Active Substance: METOPROLOL
  10. CLOZAPINE. [Suspect]
     Active Substance: CLOZAPINE
     Indication: PRODUCT USED FOR UNKNOWN INDICATION
     Route: 048
     Dates: start: 20190325

REACTIONS (2)
  - Formication [Not Recovered/Not Resolved]
  - Salivary hypersecretion [Not Recovered/Not Resolved]

NARRATIVE: CASE EVENT DATE: 2019
